FAERS Safety Report 25783238 (Version 2)
Quarter: 2025Q4

REPORT INFORMATION
  Report Type: Spontaneous
  Country: JP (occurrence: JP)
  Receive Date: 20250910
  Receipt Date: 20251203
  Transmission Date: 20260119
  Serious: Yes (Hospitalization, Other)
  Sender: ASTELLAS
  Company Number: JP-ASTELLAS-2025-AER-048587

PATIENT
  Age: 8 Decade
  Sex: Male

DRUGS (2)
  1. PADCEV [Suspect]
     Active Substance: ENFORTUMAB VEDOTIN-EJFV
     Indication: Transitional cell carcinoma
     Route: 042
     Dates: start: 20250717
  2. PADCEV [Suspect]
     Active Substance: ENFORTUMAB VEDOTIN-EJFV
     Route: 042
     Dates: end: 20251030

REACTIONS (5)
  - Dehydration [Recovering/Resolving]
  - Rash [Recovered/Resolved]
  - Malaise [Recovered/Resolved]
  - Taste disorder [Not Recovered/Not Resolved]
  - Encephalitis [Recovering/Resolving]

NARRATIVE: CASE EVENT DATE: 20250721
